FAERS Safety Report 21717877 (Version 2)
Quarter: 2023Q1

REPORT INFORMATION
  Report Type: Spontaneous
  Country: IN (occurrence: IN)
  Receive Date: 20221212
  Receipt Date: 20230227
  Transmission Date: 20230418
  Serious: Yes (Other)
  Sender: FDA-Public Use
  Company Number: IN-JUBILANT PHARMA LTD-2022IN000610

PATIENT
  Age: 27 Year

DRUGS (1)
  1. SODIUM IODIDE I-131 [Suspect]
     Active Substance: SODIUM IODIDE I-131
     Indication: Papillary thyroid cancer
     Dosage: 425 MCI

REACTIONS (4)
  - Chronic myeloid leukaemia [Recovering/Resolving]
  - Abdominal mass [Recovered/Resolved]
  - Early satiety [Recovered/Resolved]
  - Abdominal pain [Recovered/Resolved]
